FAERS Safety Report 5317752-9 (Version None)
Quarter: 2007Q2

REPORT INFORMATION
  Report Type: 
  Country: None (occurrence: None)
  Receive Date: 20070507
  Receipt Date: 20070427
  Transmission Date: 20071010
  Serious: Yes (Hospitalization, Other)
  Sender: FDA-Public Use
  Company Number: PHBS2007BR06214

PATIENT
  Age: 43 Year
  Sex: Male

DRUGS (14)
  1. TRILEPTAL [Suspect]
     Indication: EPILEPSY
     Dosage: 600 MG, TID
     Route: 048
     Dates: start: 20040101
  2. TRILEPTAL [Suspect]
     Dosage: 300 MG, Q12H
     Route: 048
  3. HIGROTON [Concomitant]
     Indication: HYPERTENSION
     Dosage: 25 MG, UNK
     Route: 048
  4. TEGRETOL [Suspect]
     Indication: EPILEPSY
     Dosage: 200 MG, Q12H
     Route: 048
  5. AMLODIPINE [Concomitant]
     Indication: HYPERTENSION
     Dosage: 5 MG, UNK
     Route: 048
  6. ATACAND HCT [Concomitant]
     Indication: HYPERTENSION
     Dosage: 16/12.5 MG/DAY
     Route: 048
  7. ATACAND [Concomitant]
     Indication: HYPERTENSION
     Dosage: 16 MG, UNK
     Route: 048
  8. OMEPRAZOLE [Concomitant]
     Dosage: UNK, QD
     Route: 048
  9. SIMVASTATIN [Concomitant]
     Indication: DYSLIPIDAEMIA
     Dosage: 10 MG, QD
     Route: 048
  10. NEULEPTIL [Concomitant]
     Dosage: 4 DROPS/DAY
     Route: 048
  11. VALPROIC ACID [Concomitant]
     Indication: CONVULSION
     Dosage: UNK, QD
     Route: 048
  12. GABAPENTIN [Concomitant]
     Indication: CONVULSION
     Dosage: 300 MG, TID
     Route: 048
  13. BACLOFEN [Concomitant]
     Indication: CONVULSION
     Dosage: 5 MG, TID
     Route: 048
  14. THIAZIDES [Concomitant]
     Indication: HYPERTENSION
     Route: 048

REACTIONS (6)
  - CONVULSION [None]
  - DIZZINESS [None]
  - HYPONATRAEMIA [None]
  - LIFE SUPPORT [None]
  - PNEUMONIA ASPIRATION [None]
  - TRACHEOSTOMY [None]
